FAERS Safety Report 5675833-4 (Version None)
Quarter: 2008Q1

REPORT INFORMATION
  Report Type: 
  Country: None (occurrence: None)
  Receive Date: 20080318
  Receipt Date: 20080303
  Transmission Date: 20080703
  Serious: Yes (Hospitalization)
  Sender: FDA-Public Use
  Company Number: L08-USA-00896-01

PATIENT
  Age: 78 Year
  Sex: Female

DRUGS (12)
  1. MEMANTINE HCL [Suspect]
     Indication: DEMENTIA ALZHEIMER'S TYPE
     Dosage: MG
     Dates: end: 20071001
  2. MEMANTINE HCL [Suspect]
     Indication: DEMENTIA ALZHEIMER'S TYPE
     Dosage: 10 MG BID
     Dates: start: 20060701
  3. CARBIDOPA AND LEVODOPA [Concomitant]
  4. TRIMETHOPRIM/SULFAMETHOXAZOLE (TMP/SMX) [Concomitant]
  5. DONEPEZIL HCL [Concomitant]
  6. TRIMETHOPRIM [Suspect]
     Indication: PROPHYLAXIS URINARY TRACT INFECTION
     Dosage: 100 MG QD
     Dates: start: 20070701, end: 20070101
  7. FAMOTIDINE [Concomitant]
  8. PAROXETINE HCL [Concomitant]
  9. LISINOPRIL AND HYDROCHLOROTHIAZIDE [Concomitant]
  10. ATORVASTATIN CALCIUM [Concomitant]
  11. CIPROFLOXACIN [Concomitant]
  12. OLANZAPINE [Concomitant]

REACTIONS (30)
  - ABASIA [None]
  - AGGRESSION [None]
  - BALANCE DISORDER [None]
  - CEREBRAL ATROPHY [None]
  - CEREBRAL ISCHAEMIA [None]
  - CONDITION AGGRAVATED [None]
  - CONSTIPATION [None]
  - DELIRIUM [None]
  - DELUSION [None]
  - DEMENTIA ALZHEIMER'S TYPE [None]
  - DEPRESSION [None]
  - DRUG INTERACTION [None]
  - FAECAL INCONTINENCE [None]
  - FAILURE TO THRIVE [None]
  - FALL [None]
  - GASTROOESOPHAGEAL REFLUX DISEASE [None]
  - HALLUCINATION [None]
  - HUNGER [None]
  - HYPERTENSION [None]
  - LIVEDO RETICULARIS [None]
  - MUCOUS MEMBRANE DISORDER [None]
  - MUSCLE TWITCHING [None]
  - MYOCLONUS [None]
  - PAIN [None]
  - RENAL IMPAIRMENT [None]
  - RESTLESS LEGS SYNDROME [None]
  - SOMNOLENCE [None]
  - TREMOR [None]
  - URINARY INCONTINENCE [None]
  - URINARY TRACT INFECTION [None]
